FAERS Safety Report 4683338-2 (Version None)
Quarter: 2005Q2

REPORT INFORMATION
  Report Type: 
  Country: None (occurrence: None)
  Receive Date: 20050602
  Receipt Date: 20050207
  Transmission Date: 20051028
  Serious: No
  Sender: FDA-Public Use
  Company Number: 200510190BWH

PATIENT
  Age: 75 Year
  Sex: Male
  Weight: 74.8435 kg

DRUGS (2)
  1. LEVITRA [Suspect]
     Indication: ERECTILE DYSFUNCTION
     Dosage: 5 MG, ONCE, ORAL
     Route: 048
     Dates: start: 20050124
  2. LEVITRA [Suspect]
     Dosage: ORAL
     Route: 048

REACTIONS (1)
  - ERECTILE DYSFUNCTION [None]
